FAERS Safety Report 7554880-1 (Version None)
Quarter: 2011Q2

REPORT INFORMATION
  Report Type: 
  Country: None (occurrence: None)
  Receive Date: 20110615
  Receipt Date: 20110615
  Transmission Date: 20111010
  Serious: Yes (Hospitalization, Other)
  Sender: FDA-Public Use
  Company Number: None

PATIENT
  Age: 29 Year
  Sex: Female

DRUGS (1)
  1. TYSABRI [Suspect]
     Dosage: 300MG QMONTH IV
     Route: 042
     Dates: start: 20110201, end: 20110301

REACTIONS (4)
  - JOINT SWELLING [None]
  - HEART RATE INCREASED [None]
  - DYSPNOEA [None]
  - ARTHRALGIA [None]
